FAERS Safety Report 7329718-8 (Version None)
Quarter: 2011Q1

REPORT INFORMATION
  Report Type: 
  Country: None (occurrence: None)
  Receive Date: 20110303
  Receipt Date: 20110218
  Transmission Date: 20110831
  Serious: Yes (Hospitalization, Other)
  Sender: FDA-Public Use
  Company Number: PHHY2009JP52590

PATIENT
  Sex: Female
  Weight: 61 kg

DRUGS (46)
  1. CERTICAN [Interacting]
     Dosage: 4 MG, UNK
     Route: 048
     Dates: start: 20091020, end: 20091105
  2. CERTICAN [Interacting]
     Dosage: 4.25 MG, UNK
     Dates: start: 20091106
  3. PROGRAF [Interacting]
     Indication: HEART TRANSPLANT
     Dosage: 5.2 MG, UNK
     Route: 048
     Dates: end: 20080921
  4. EMPECID [Concomitant]
     Indication: PROPHYLAXIS
     Dosage: UNK
     Route: 061
     Dates: start: 20080821, end: 20080910
  5. CERTICAN [Interacting]
     Dosage: 5.5 MG, UNK
     Route: 048
     Dates: end: 20081126
  6. CERTICAN [Interacting]
     Dosage: 3 MG, UNK
     Route: 048
     Dates: start: 20090306, end: 20090326
  7. PREDNISOLONE [Concomitant]
     Dosage: 10 MG, UNK
  8. CERTICAN [Interacting]
     Dosage: 4 MG, UNK
     Route: 048
     Dates: start: 20080101, end: 20080101
  9. CERTICAN [Interacting]
     Dosage: 3.25 MG, UNK
     Route: 048
     Dates: start: 20090305, end: 20090305
  10. PRAVASTAN [Concomitant]
     Indication: PROPHYLAXIS
     Dosage: 20 MG
     Route: 048
     Dates: start: 20050105
  11. UNASYN [Concomitant]
  12. POLYGAM S/D [Concomitant]
  13. PACEMAKER [Concomitant]
  14. CERTICAN [Interacting]
     Dosage: 3.25 MG, UNK
     Dates: start: 20090327, end: 20090513
  15. TEGRETOL [Interacting]
     Indication: EPILEPSY
     Dosage: 200 MG, UNK
     Route: 048
     Dates: start: 20061013
  16. PROGRAF [Interacting]
     Dosage: 4.5 MG, UNK
     Route: 048
     Dates: start: 20081128, end: 20081128
  17. PROGRAF [Interacting]
     Dosage: 3.5 MG, UNK
     Route: 048
     Dates: start: 20090313, end: 20090313
  18. PREDNISOLONE [Concomitant]
     Dosage: 8 MG, UNK
  19. CERTICAN [Interacting]
     Dosage: 4.5 MG, UNK
     Route: 048
     Dates: start: 20081213, end: 20090218
  20. CERTICAN [Interacting]
     Dosage: 4.5 MG, UNK
     Route: 048
     Dates: start: 20091002, end: 20091019
  21. PROGRAF [Interacting]
     Dosage: 4.0 MG, UNK
     Route: 048
     Dates: start: 20081129, end: 20090218
  22. PROGRAF [Interacting]
     Dosage: 3 MG, UNK
     Route: 048
     Dates: start: 20090219, end: 20090312
  23. CELLCEPT [Concomitant]
     Dosage: 1750 MG, UNK
     Route: 048
     Dates: end: 20081126
  24. CELLCEPT [Concomitant]
     Dosage: 500 MG, UNK
  25. NEUTROGIN [Concomitant]
  26. CERTICAN [Interacting]
     Dosage: 3.5 MG, UNK
     Route: 048
     Dates: start: 20090514, end: 20091001
  27. PREDNISOLONE [Concomitant]
     Dosage: 7.5 MG, UNK
  28. DEPAKENE [Concomitant]
     Indication: EPILEPSY
     Dosage: 800 MG, UNK
     Route: 048
     Dates: start: 20050813
  29. AMPICILLIN SODIUM/SULBACTAM SODIUM [Concomitant]
  30. CERTICAN [Suspect]
     Indication: HEART TRANSPLANT
     Dosage: 1.5 MG/ DAY
     Route: 048
     Dates: start: 20080722, end: 20080727
  31. CERTICAN [Interacting]
     Dosage: 2.5 MG/ DAY
     Route: 048
     Dates: start: 20080728
  32. CERTICAN [Interacting]
     Dosage: 5.25 MG/ DAY
     Route: 048
     Dates: start: 20080101, end: 20080814
  33. CERTICAN [Interacting]
     Dosage: 5.25 MG, UNK
     Route: 048
     Dates: start: 20081127, end: 20081128
  34. CERTICAN [Interacting]
     Dosage: 5 MG, UNK
     Route: 048
     Dates: start: 20081129, end: 20081211
  35. CERTICAN [Interacting]
     Dosage: 4.75 MG, UNK
     Route: 048
     Dates: start: 20081212, end: 20081212
  36. PROGRAF [Interacting]
     Dosage: 3 MG, UNK
     Route: 048
     Dates: start: 20090317, end: 20090507
  37. PREDNISOLONE [Concomitant]
     Indication: HEART TRANSPLANT
     Dosage: 15 MG, UNK
     Dates: start: 20080728
  38. PREDNISOLONE [Concomitant]
     Dosage: 5 MG, UNK
  39. MEROPEN [Concomitant]
  40. CERTICAN [Interacting]
     Dosage: 3.5 MG, UNK
     Route: 048
     Dates: start: 20090219, end: 20090304
  41. PROGRAF [Interacting]
     Dosage: 5.0 MG, UNK
     Route: 048
     Dates: start: 20080922, end: 20081127
  42. CELLCEPT [Concomitant]
     Indication: HEART TRANSPLANT
     Dosage: UNK
     Route: 048
     Dates: start: 20080722
  43. PREDNISOLONE [Concomitant]
     Dosage: 2.5 MG, UNK
  44. VALPROATE SODIUM [Concomitant]
     Indication: EPILEPSY
  45. FUNGIZONE [Concomitant]
  46. EMPECID [Concomitant]

REACTIONS (14)
  - CORONARY ARTERY DISEASE [None]
  - ENTERITIS [None]
  - DRUG LEVEL DECREASED [None]
  - ABDOMINAL PAIN [None]
  - SYNCOPE [None]
  - LYMPHADENOPATHY [None]
  - EPSTEIN-BARR VIRUS ANTIGEN POSITIVE [None]
  - GRANULOCYTOPENIA [None]
  - PHARYNGITIS [None]
  - GASTROINTESTINAL DISORDER [None]
  - PNEUMONIA BACTERIAL [None]
  - DEPRESSION [None]
  - DRUG INTERACTION [None]
  - IMMUNOSUPPRESSANT DRUG LEVEL INCREASED [None]
